FAERS Safety Report 5399787-3 (Version None)
Quarter: 2007Q3

REPORT INFORMATION
  Report Type: 
  Country: None (occurrence: None)
  Receive Date: 20070730
  Receipt Date: 20070718
  Transmission Date: 20080115
  Serious: Yes (Other)
  Sender: FDA-Public Use
  Company Number: GB-JNJFOC-20070704030

PATIENT
  Sex: Male
  Weight: 80 kg

DRUGS (9)
  1. REMICADE [Suspect]
     Indication: RHEUMATOID ARTHRITIS
     Route: 042
  2. PREDNISOLONE [Concomitant]
  3. ASPIRIN [Concomitant]
  4. BECOTIDE [Concomitant]
  5. DIDRONEL [Concomitant]
  6. FLUOXETINE [Concomitant]
  7. FUROSEMIDE INTENSOL [Concomitant]
  8. PARACETAMOL [Concomitant]
  9. SIMVASTIN [Concomitant]

REACTIONS (1)
  - SKIN CANCER [None]
